FAERS Safety Report 23948924 (Version 1)
Quarter: 2024Q2

REPORT INFORMATION
  Report Type: Spontaneous
  Country: GB (occurrence: GB)
  Receive Date: 20240607
  Receipt Date: 20240607
  Transmission Date: 20240715
  Serious: Yes (Hospitalization, Disabling, Other)
  Sender: FDA-Public Use
  Company Number: None

PATIENT
  Age: 46 Year
  Sex: Female
  Weight: 115 kg

DRUGS (12)
  1. SERTRALINE [Suspect]
     Active Substance: SERTRALINE HYDROCHLORIDE
     Indication: Depression
     Dosage: 100MG ONCE A DAY
     Dates: end: 20240122
  2. MONTELUKAST [Concomitant]
     Active Substance: MONTELUKAST SODIUM
  3. LERCANIDIPINE [Concomitant]
     Active Substance: LERCANIDIPINE
  4. LANSOPRAZOLE [Concomitant]
     Active Substance: LANSOPRAZOLE
  5. OXYCODONE [Concomitant]
     Active Substance: OXYCODONE\OXYCODONE HYDROCHLORIDE
  6. PREGABALIN [Concomitant]
     Active Substance: PREGABALIN
  7. DOXAZOSIN [Concomitant]
     Active Substance: DOXAZOSIN MESYLATE
  8. BECLOMETHASONE\FORMOTEROL [Concomitant]
     Active Substance: BECLOMETHASONE\FORMOTEROL
  9. CELECOXIB [Concomitant]
     Active Substance: CELECOXIB
  10. TIOTROPIUM BROMIDE [Concomitant]
     Active Substance: TIOTROPIUM BROMIDE
  11. ACETAMINOPHEN [Concomitant]
     Active Substance: ACETAMINOPHEN
  12. EDOXABAN [Concomitant]
     Active Substance: EDOXABAN

REACTIONS (2)
  - Metabolic myopathy [Recovering/Resolving]
  - Rhabdomyolysis [Recovered/Resolved]

NARRATIVE: CASE EVENT DATE: 20220901
